FAERS Safety Report 9260075 (Version 1)
Quarter: 2013Q2

REPORT INFORMATION
  Report Type: Report from Study
  Country: CN (occurrence: CN)
  Receive Date: 20130429
  Receipt Date: 20130429
  Transmission Date: 20140414
  Serious: Yes (Other)
  Sender: FDA-Public Use
  Company Number: CN-ROCHE-1219319

PATIENT
  Sex: Female
  Weight: 70 kg

DRUGS (1)
  1. AVASTIN [Suspect]
     Indication: COLON CANCER METASTATIC
     Route: 042
     Dates: start: 20121109

REACTIONS (3)
  - Metastases to peritoneum [Unknown]
  - Inflammation [Unknown]
  - Abdominal pain upper [Unknown]
